FAERS Safety Report 15699105 (Version 1)
Quarter: 2018Q4

REPORT INFORMATION
  Report Type: Spontaneous
  Country: US (occurrence: US)
  Receive Date: 20181207
  Receipt Date: 20181207
  Transmission Date: 20190205
  Serious: Yes (Disabling)
  Sender: FDA-Public Use
  Company Number: None

PATIENT
  Age: 50 Year
  Sex: Female
  Weight: 72.45 kg

DRUGS (3)
  1. WELLBUTRIN [Suspect]
     Active Substance: BUPROPION HYDROCHLORIDE
     Indication: DEPRESSION
     Dosage: ?          QUANTITY:1 TABLET(S);?
     Route: 048
     Dates: start: 20120910, end: 20160922
  2. CITALOPRAM [Suspect]
     Active Substance: CITALOPRAM HYDROBROMIDE
     Indication: PERINATAL DEPRESSION
     Dosage: ?          QUANTITY:1 TABLET(S);?
     Route: 048
     Dates: start: 20050909
  3. GENERAL MULTI MINERAL [Concomitant]

REACTIONS (16)
  - Chills [None]
  - Therapy cessation [None]
  - Muscle spasms [None]
  - Dyspnoea [None]
  - Tremor [None]
  - Serotonin syndrome [None]
  - Drug hypersensitivity [None]
  - Menopause [None]
  - Pulmonary oedema [None]
  - Myoclonus [None]
  - Cerebrovascular accident [None]
  - Confusional state [None]
  - Palpitations [None]
  - Feeling abnormal [None]
  - Food allergy [None]
  - Respiratory depression [None]

NARRATIVE: CASE EVENT DATE: 20160922
